FAERS Safety Report 8539888-1 (Version None)
Quarter: 2012Q3

REPORT INFORMATION
  Report Type: 
  Country: None (occurrence: None)
  Receive Date: 20120726
  Receipt Date: 20120718
  Transmission Date: 20120928
  Serious: Yes (Other)
  Sender: FDA-Public Use
  Company Number: JP-B.I. PHARMACEUTICALS,INC./RIDGEFIELD-2012-EU-03427GD

PATIENT
  Age: 21 Year
  Sex: Female

DRUGS (3)
  1. WARFARIN SODIUM [Suspect]
     Indication: ANTICOAGULANT THERAPY
  2. ASPIRIN [Suspect]
     Indication: ANTICOAGULANT THERAPY
  3. DIPYRIDAMOLE [Suspect]
     Indication: ANTICOAGULANT THERAPY

REACTIONS (5)
  - SHOCK [None]
  - OVARIAN HAEMORRHAGE [None]
  - ACUTE MYOCARDIAL INFARCTION [None]
  - ANGINA UNSTABLE [None]
  - DRUG INEFFECTIVE [None]
